FAERS Safety Report 12272253 (Version 10)
Quarter: 2016Q4

REPORT INFORMATION
  Report Type: Report from Study
  Country: US (occurrence: US)
  Receive Date: 20160415
  Receipt Date: 20161130
  Transmission Date: 20170207
  Serious: Yes (Other)
  Sender: FDA-Public Use
  Company Number: US-BAYER-2016-069886

PATIENT
  Age: 70 Year
  Sex: Female
  Weight: 80.27 kg

DRUGS (12)
  1. ATENOLOL. [Concomitant]
     Active Substance: ATENOLOL
     Dosage: UNK
  2. ADEMPAS [Suspect]
     Active Substance: RIOCIGUAT
     Indication: PULMONARY HYPERTENSION
     Dosage: 0.5 MG, UNK
  3. ADEMPAS [Suspect]
     Active Substance: RIOCIGUAT
     Indication: PULMONARY HYPERTENSION
     Dosage: 2.0 MG, TID
  4. ADEMPAS [Suspect]
     Active Substance: RIOCIGUAT
     Indication: PULMONARY HYPERTENSION
     Dosage: 1.5 MG, TID
     Route: 048
  5. ADEMPAS [Suspect]
     Active Substance: RIOCIGUAT
     Indication: PULMONARY HYPERTENSION
     Dosage: 1.5 MG, TID
     Route: 048
  6. ADEMPAS [Suspect]
     Active Substance: RIOCIGUAT
     Indication: PULMONARY HYPERTENSION
     Dosage: 0.5 MG, BID
  7. ADEMPAS [Suspect]
     Active Substance: RIOCIGUAT
     Indication: PULMONARY HYPERTENSION
     Dosage: 1 MG, TID
     Route: 048
  8. LISINOPRIL. [Concomitant]
     Active Substance: LISINOPRIL
     Dosage: UNK
  9. ADEMPAS [Suspect]
     Active Substance: RIOCIGUAT
     Indication: PULMONARY HYPERTENSION
     Dosage: UNK
     Dates: start: 20160324
  10. APIXABAN [Concomitant]
     Active Substance: APIXABAN
     Dosage: UNK
  11. OPSUMIT [Concomitant]
     Active Substance: MACITENTAN
     Dosage: UNK
  12. DEXILANT [Concomitant]
     Active Substance: DEXLANSOPRAZOLE

REACTIONS (29)
  - Pain [Recovered/Resolved]
  - Dyspepsia [Not Recovered/Not Resolved]
  - Renal disorder [Unknown]
  - Dizziness [Recovering/Resolving]
  - Joint swelling [None]
  - Contusion [None]
  - Renal disorder [None]
  - Dyspepsia [Unknown]
  - Headache [Unknown]
  - Fluid retention [Unknown]
  - Peripheral swelling [None]
  - Pain in jaw [Unknown]
  - Adverse drug reaction [Recovering/Resolving]
  - Gastrooesophageal reflux disease [Unknown]
  - Asthenia [Unknown]
  - Hiatus hernia [Recovering/Resolving]
  - Tinnitus [Recovered/Resolved]
  - Musculoskeletal pain [Unknown]
  - Blood potassium decreased [None]
  - Chromaturia [Recovered/Resolved]
  - Cough [Unknown]
  - Dyspepsia [Recovering/Resolving]
  - Oedema [Unknown]
  - Vomiting [None]
  - Dyspnoea [Recovered/Resolved]
  - Coeliac disease [None]
  - Drug interaction [Recovering/Resolving]
  - Palpitations [None]
  - Fatigue [Unknown]

NARRATIVE: CASE EVENT DATE: 20160403
